FAERS Safety Report 9879935 (Version 1)
Quarter: 2014Q1

REPORT INFORMATION
  Report Type: Spontaneous
  Country: IT (occurrence: IT)
  Receive Date: 20140207
  Receipt Date: 20140207
  Transmission Date: 20141002
  Serious: Yes (Other)
  Sender: FDA-Public Use
  Company Number: IT-AMGEN-ITASP2014008138

PATIENT
  Age: 56 Year
  Sex: Female

DRUGS (5)
  1. ENBREL [Suspect]
     Indication: PRODUCT USED FOR UNKNOWN INDICATION
     Dosage: 50 MG, WEEKLY
     Route: 058
     Dates: start: 20100901, end: 20140108
  2. METHOTREXATE [Concomitant]
     Dosage: UNK
  3. FOLINA                             /00024201/ [Concomitant]
     Dosage: UNK
  4. NATECAL [Concomitant]
     Dosage: UNK
  5. ALENDROS [Concomitant]
     Dosage: UNK

REACTIONS (2)
  - Treatment failure [Unknown]
  - Uveitis [Unknown]
